FAERS Safety Report 15160849 (Version 1)
Quarter: 2018Q3

REPORT INFORMATION
  Report Type: Spontaneous
  Country: US (occurrence: US)
  Receive Date: 20180621
  Receipt Date: 20180621
  Transmission Date: 20181010
  Serious: No
  Sender: FDA-Public Use
  Company Number: None

PATIENT
  Age: 63 Year
  Sex: Male

DRUGS (3)
  1. TASIGNA [Suspect]
     Active Substance: NILOTINIB
     Indication: BONE CANCER
     Route: 048
     Dates: start: 20180312, end: 20180530
  2. TASIGNA [Suspect]
     Active Substance: NILOTINIB
     Indication: NEOPLASM PROSTATE
     Route: 048
     Dates: start: 20180312, end: 20180530
  3. TASIGNA [Concomitant]
     Active Substance: NILOTINIB
     Indication: BONE CANCER

REACTIONS (1)
  - Cardiac failure [None]

NARRATIVE: CASE EVENT DATE: 20180501
